FAERS Safety Report 21374851 (Version 1)
Quarter: 2022Q3

REPORT INFORMATION
  Report Type: Spontaneous
  Country: US (occurrence: US)
  Receive Date: 20220926
  Receipt Date: 20220926
  Transmission Date: 20221027
  Serious: No
  Sender: FDA-Public Use
  Company Number: US-AMGEN-USASP2022164901

PATIENT

DRUGS (7)
  1. TRASTUZUMAB [Suspect]
     Active Substance: TRASTUZUMAB
     Indication: Non-small cell lung cancer metastatic
     Dosage: 6 MILLIGRAM/KILOGRAM, Q2WK
     Route: 042
  2. TRASTUZUMAB [Suspect]
     Active Substance: TRASTUZUMAB
     Dosage: 4 MILLIGRAM/KILOGRAM, Q2WK
     Route: 042
  3. OSIMERTINIB [Suspect]
     Active Substance: OSIMERTINIB
     Indication: Non-small cell lung cancer metastatic
     Dosage: 40 MILLIGRAM, QD
     Route: 048
  4. OSIMERTINIB [Suspect]
     Active Substance: OSIMERTINIB
     Dosage: 80 MILLIGRAM, QD
     Route: 048
  5. NECITUMUMAB [Suspect]
     Active Substance: NECITUMUMAB
     Indication: Non-small cell lung cancer metastatic
     Dosage: 400 UNK, Q2WK
     Route: 065
  6. NECITUMUMAB [Suspect]
     Active Substance: NECITUMUMAB
     Dosage: 600 UNK, Q2WK
     Route: 065
  7. NECITUMUMAB [Suspect]
     Active Substance: NECITUMUMAB
     Dosage: 800 UNK, Q2WK
     Route: 065

REACTIONS (10)
  - Therapy partial responder [Unknown]
  - Dermatitis acneiform [Unknown]
  - Dry skin [Unknown]
  - Diarrhoea [Unknown]
  - Hypertension [Unknown]
  - Headache [Unknown]
  - Nausea [Unknown]
  - Fatigue [Unknown]
  - Stomatitis [Unknown]
  - Vomiting [Unknown]
